FAERS Safety Report 18578940 (Version 1)
Quarter: 2020Q4

REPORT INFORMATION
  Report Type: Spontaneous
  Country: US (occurrence: US)
  Receive Date: 20201202
  Receipt Date: 20201202
  Transmission Date: 20210114
  Serious: Yes (Other)
  Sender: FDA-Public Use
  Company Number: None

PATIENT
  Age: 76 Year
  Sex: Female
  Weight: 68.4 kg

DRUGS (22)
  1. CASPOFUNGIN [Concomitant]
     Active Substance: CASPOFUNGIN
     Dates: end: 20200924
  2. LORAZEPAM. [Concomitant]
     Active Substance: LORAZEPAM
     Dates: end: 20200907
  3. MANNITOL. [Concomitant]
     Active Substance: MANNITOL
     Dates: end: 20200912
  4. PROVIGIL [Concomitant]
     Active Substance: MODAFINIL
     Dates: end: 20201004
  5. CEFEPIME [Concomitant]
     Active Substance: CEFEPIME HYDROCHLORIDE
     Dates: end: 20200916
  6. LOSARTAN. [Concomitant]
     Active Substance: LOSARTAN
     Dates: end: 20201012
  7. AXICABTAGENE CILOLEUCEL [Suspect]
     Active Substance: AXICABTAGENE CILOLEUCEL
     Indication: DIFFUSE LARGE B-CELL LYMPHOMA
     Dosage: ?          OTHER FREQUENCY:ONCE;?
     Route: 041
     Dates: start: 20200901, end: 20200901
  8. DESMOPRESSIN [Concomitant]
     Active Substance: DESMOPRESSIN
     Dates: end: 20200919
  9. LACOSAMIDE. [Concomitant]
     Active Substance: LACOSAMIDE
     Dates: end: 20200907
  10. MYCOLOG [Concomitant]
     Active Substance: GRAMICIDIN\NEOMYCIN SULFATE\NYSTATIN\TRIAMCINOLONE ACETONIDE
     Dates: end: 20201117
  11. ACETAMINOPHEN. [Concomitant]
     Active Substance: ACETAMINOPHEN
     Dates: start: 20200901, end: 20201003
  12. ACYCLOVIR. [Concomitant]
     Active Substance: ACYCLOVIR
     Dates: end: 20201013
  13. BUPROPRION [Concomitant]
     Active Substance: BUPROPION
     Dates: start: 20200901, end: 20201012
  14. HYDRALAZINE [Concomitant]
     Active Substance: HYDRALAZINE HYDROCHLORIDE
     Dates: end: 20201012
  15. CIPROFLOXACIN. [Concomitant]
     Active Substance: CIPROFLOXACIN
     Dates: start: 20200902, end: 20200905
  16. DILTIAZEM. [Concomitant]
     Active Substance: DILTIAZEM
     Dates: end: 20201011
  17. METOPROLOL TARTRATE. [Concomitant]
     Active Substance: METOPROLOL TARTRATE
     Dates: end: 20201011
  18. CLONIDINE. [Concomitant]
     Active Substance: CLONIDINE
     Dates: end: 20200917
  19. FAMOTIDINE. [Concomitant]
     Active Substance: FAMOTIDINE
     Dates: end: 20200920
  20. INSULIN LISPRO [Concomitant]
     Active Substance: INSULIN LISPRO
     Dates: end: 20200925
  21. KEPPRA [Concomitant]
     Active Substance: LEVETIRACETAM
     Dates: end: 20201012
  22. MAGNESIUM SULFATE. [Concomitant]
     Active Substance: MAGNESIUM SULFATE
     Dates: end: 20200930

REACTIONS (2)
  - Cytokine release syndrome [None]
  - Neurotoxicity [None]

NARRATIVE: CASE EVENT DATE: 20200902
